FAERS Safety Report 9691531 (Version 1)
Quarter: 2013Q4

REPORT INFORMATION
  Report Type: Spontaneous
  Country: US (occurrence: US)
  Receive Date: 20131115
  Receipt Date: 20131115
  Transmission Date: 20140711
  Serious: Yes (Hospitalization)
  Sender: FDA-Public Use
  Company Number: PHHY2013US128630

PATIENT
  Age: 58 Year
  Sex: Female

DRUGS (5)
  1. DILTIAZEM [Suspect]
     Dosage: 30-40 PILLS
     Route: 048
  2. METFORMIN [Concomitant]
  3. CAFFEINE [Concomitant]
  4. NICOTINE [Concomitant]
  5. CITALOPRAM [Concomitant]

REACTIONS (7)
  - Respiratory failure [Recovered/Resolved]
  - Respiratory rate decreased [Recovered/Resolved]
  - Toxicity to various agents [Recovered/Resolved]
  - Blood pressure decreased [Recovered/Resolved]
  - Atrioventricular block first degree [Recovered/Resolved]
  - Electrocardiogram abnormal [Recovered/Resolved]
  - Heart rate decreased [Recovered/Resolved]
